FAERS Safety Report 25607524 (Version 1)
Quarter: 2025Q3

REPORT INFORMATION
  Report Type: Spontaneous
  Country: US (occurrence: US)
  Receive Date: 20250725
  Receipt Date: 20250725
  Transmission Date: 20251020
  Serious: No
  Sender: CALLIDITAS THERAPEUTICS AB
  Company Number: US-Calliditas-2025CAL02127

PATIENT
  Age: 54 Year
  Sex: Male

DRUGS (8)
  1. TARPEYO [Suspect]
     Active Substance: BUDESONIDE
     Indication: IgA nephropathy
     Route: 048
     Dates: start: 20250512
  2. ASPIRINA COMPLEX [Concomitant]
  3. ATORVASTATIN [Concomitant]
     Active Substance: ATORVASTATIN
  4. CALCITRIOL [Concomitant]
     Active Substance: CALCITRIOL
  5. DAPAGLIFLOZIN [Concomitant]
     Active Substance: DAPAGLIFLOZIN
  6. ERGOCALCIFEROL [Concomitant]
     Active Substance: ERGOCALCIFEROL
  7. LAGEVRIO [Concomitant]
     Active Substance: MOLNUPIRAVIR
  8. METFORMIN [Concomitant]
     Active Substance: METFORMIN HYDROCHLORIDE

REACTIONS (1)
  - Libido decreased [Not Recovered/Not Resolved]
